FAERS Safety Report 11291429 (Version 1)
Quarter: 2015Q3

REPORT INFORMATION
  Report Type: Spontaneous
  Country: US (occurrence: US)
  Receive Date: 20150722
  Receipt Date: 20150722
  Transmission Date: 20151125
  Serious: No
  Sender: FDA-Public Use
  Company Number: US-UNITED THERAPEUTICS-UNT-2015-002301

PATIENT
  Sex: Female
  Weight: 107.94 kg

DRUGS (1)
  1. REMODULIN [Suspect]
     Active Substance: TREPROSTINIL
     Indication: PULMONARY HYPERTENSION
     Dosage: 0.039 ?G/KG/MIN, CONTINUING
     Route: 041
     Dates: start: 20140714

REACTIONS (4)
  - Headache [Unknown]
  - Flushing [Unknown]
  - Weight decreased [Unknown]
  - Pain in extremity [Unknown]
